FAERS Safety Report 8177109-2 (Version None)
Quarter: 2012Q1

REPORT INFORMATION
  Report Type: 
  Country: None (occurrence: None)
  Receive Date: 20120301
  Receipt Date: 20120227
  Transmission Date: 20120608
  Serious: Yes (Other)
  Sender: FDA-Public Use
  Company Number: US-GLAXOSMITHKLINE-A0967662A

PATIENT
  Age: 56 Year
  Sex: Female

DRUGS (4)
  1. ADVAIR DISKUS 100/50 [Suspect]
     Indication: ASTHMA
     Dosage: 2PUFF TWICE PER DAY
     Route: 055
     Dates: start: 20110801, end: 20120101
  2. ALBUTEROL INHALER [Concomitant]
  3. LISINOPRIL [Concomitant]
  4. SINGULAIR [Concomitant]

REACTIONS (4)
  - VOCAL CORD INFLAMMATION [None]
  - APHONIA [None]
  - VOCAL CORD DISORDER [None]
  - LARYNGEAL OEDEMA [None]
